FAERS Safety Report 4625666-2 (Version None)
Quarter: 2005Q1

REPORT INFORMATION
  Report Type: 
  Country: None (occurrence: None)
  Receive Date: 20050303
  Receipt Date: 20050315
  Transmission Date: 20050727
  Serious: Yes (Other)
  Sender: FDA-Public Use
  Company Number: GBS050316925

PATIENT
  Age: 48 Year
  Weight: 81 kg

DRUGS (5)
  1. YENTREVE (DULOXETINE HYDROCHLORIDE) [Suspect]
     Indication: STRESS INCONTINENCE
     Dosage: 40 MG
     Dates: start: 20050222, end: 20050222
  2. TEMAZEPAM [Concomitant]
  3. OMEPRAZOLE [Concomitant]
  4. BENDROFLUAZIDE [Concomitant]
  5. THYROXINE (LEVOTHYROXINE SODIUM) [Concomitant]

REACTIONS (4)
  - CONFUSIONAL STATE [None]
  - DIFFICULTY IN WALKING [None]
  - MUSCULAR WEAKNESS [None]
  - VOMITING [None]
